FAERS Safety Report 9450427 (Version 1)
Quarter: 2013Q3

REPORT INFORMATION
  Report Type: Spontaneous
  Country: GB (occurrence: None)
  Receive Date: 20130807
  Receipt Date: 20130807
  Transmission Date: 20140515
  Serious: No
  Sender: FDA-Public Use
  Company Number: P1-09717

PATIENT
  Age: 62 Year
  Sex: Female

DRUGS (16)
  1. CHLORAPREP (2%CHG/70%IPA) [Suspect]
     Indication: PREOPERATIVE CARE
     Route: 061
  2. CHLORAPREP (2%CHG/70%IPA) [Suspect]
     Indication: THERAPEUTIC SKIN CARE TOPICAL
     Route: 061
  3. AMITRIPTYLINE [Concomitant]
  4. ATORVASTATIN [Concomitant]
  5. BISACODYL [Concomitant]
  6. CALCICHEW [Concomitant]
  7. DIAZEPAM [Concomitant]
  8. EPREX [Concomitant]
  9. EZETIMIBE [Concomitant]
  10. FUROSEMIDE [Concomitant]
  11. IRON SUCROSE [Suspect]
  12. LOSARTAN [Concomitant]
  13. OMPERAZOLE [Concomitant]
  14. PAROXETINE [Concomitant]
  15. PREDNISOLONE [Concomitant]
  16. TRAMADOL [Concomitant]

REACTIONS (3)
  - Application site rash [None]
  - Application site vesicles [None]
  - Application site pruritus [None]
